FAERS Safety Report 14174330 (Version 2)
Quarter: 2017Q4

REPORT INFORMATION
  Report Type: Report from Study
  Country: AR (occurrence: AR)
  Receive Date: 20171109
  Receipt Date: 20171112
  Transmission Date: 20180321
  Serious: Yes (Death, Hospitalization)
  Sender: FDA-Public Use
  Company Number: PHHY2017AR165585

PATIENT
  Age: 82 Year
  Sex: Male

DRUGS (1)
  1. COSENTYX [Suspect]
     Active Substance: SECUKINUMAB
     Indication: PSORIASIS
     Dosage: 300 MG, QMO
     Route: 065
     Dates: start: 20160928

REACTIONS (3)
  - Meningitis [Fatal]
  - Inappropriate schedule of drug administration [Unknown]
  - Herpes zoster [Fatal]

NARRATIVE: CASE EVENT DATE: 20160928
